FAERS Safety Report 19605041 (Version 1)
Quarter: 2021Q3

REPORT INFORMATION
  Report Type: Spontaneous
  Country: US (occurrence: US)
  Receive Date: 20210723
  Receipt Date: 20210723
  Transmission Date: 20211014
  Serious: No
  Sender: FDA-Public Use
  Company Number: US-BAYER-2021-175106

PATIENT
  Sex: Female

DRUGS (1)
  1. MENOSTAR [Suspect]
     Active Substance: ESTRADIOL
     Dosage: 14 MCG PER DAY
     Route: 062

REACTIONS (5)
  - Blood thyroid stimulating hormone decreased [None]
  - Product physical issue [None]
  - Product use complaint [None]
  - Tri-iodothyronine free decreased [None]
  - Product quality issue [None]
